FAERS Safety Report 9911367 (Version 1)
Quarter: 2014Q1

REPORT INFORMATION
  Report Type: Spontaneous
  Country: TR (occurrence: TR)
  Receive Date: 20140219
  Receipt Date: 20140219
  Transmission Date: 20141002
  Serious: Yes (Other)
  Sender: FDA-Public Use
  Company Number: PHHY2014TR018714

PATIENT
  Age: 30 Year
  Sex: Female

DRUGS (7)
  1. METOPROLOL [Suspect]
     Dosage: 50 MG, UNK
  2. FUROSEMIDE [Suspect]
     Dosage: 40 MG, BID
  3. EPHEDRINE [Suspect]
     Dosage: 15 MG, UNK
  4. HEPARIN [Suspect]
  5. BUPIVACAINE [Suspect]
     Dosage: 1 ML, UNK
  6. BUPIVACAINE [Suspect]
     Dosage: 0.5 ML, UNK
  7. FENTANYL [Suspect]
     Route: 042

REACTIONS (7)
  - Pulmonary oedema [Unknown]
  - Orthopnoea [Unknown]
  - Dyspnoea [Unknown]
  - Oedema peripheral [Unknown]
  - Blood pressure decreased [Unknown]
  - Maternal exposure during pregnancy [Unknown]
  - Normal newborn [Unknown]
